FAERS Safety Report 15525133 (Version 1)
Quarter: 2018Q4

REPORT INFORMATION
  Report Type: Spontaneous
  Country: US (occurrence: US)
  Receive Date: 20181019
  Receipt Date: 20181019
  Transmission Date: 20190205
  Serious: Yes (Disabling)
  Sender: FDA-Public Use
  Company Number: None

PATIENT
  Age: 50 Year
  Sex: Female
  Weight: 74.25 kg

DRUGS (2)
  1. GADOLINIUM [Suspect]
     Active Substance: GADOLINIUM
     Indication: ANGIOGRAM
     Dates: start: 20010416, end: 20180925
  2. GADOLINIUM [Suspect]
     Active Substance: GADOLINIUM
     Indication: NUCLEAR MAGNETIC RESONANCE IMAGING
     Dates: start: 20010416, end: 20180925

REACTIONS (7)
  - Arthralgia [None]
  - Speech disorder [None]
  - Migraine [None]
  - Aneurysm [None]
  - Contrast media allergy [None]
  - Memory impairment [None]
  - Myalgia [None]

NARRATIVE: CASE EVENT DATE: 20101208
